FAERS Safety Report 18550700 (Version 2)
Quarter: 2021Q2

REPORT INFORMATION
  Report Type: Report from Study
  Country: CA (occurrence: CA)
  Receive Date: 20201126
  Receipt Date: 20210516
  Transmission Date: 20210717
  Serious: Yes (Hospitalization)
  Sender: FDA-Public Use
  Company Number: CA-JNJFOC-20201136363

PATIENT
  Age: 56 Year
  Sex: Male

DRUGS (2)
  1. METHOTREXATE. [Suspect]
     Active Substance: METHOTREXATE
     Indication: PRODUCT USED FOR UNKNOWN INDICATION
     Route: 065
  2. SIMPONI [Suspect]
     Active Substance: GOLIMUMAB
     Indication: RHEUMATOID ARTHRITIS
     Route: 058
     Dates: start: 20171213

REACTIONS (4)
  - Oesophageal disorder [Unknown]
  - Pneumonia [Unknown]
  - Weight decreased [Unknown]
  - Pneumothorax [Unknown]
